FAERS Safety Report 10688323 (Version 10)
Quarter: 2015Q2

REPORT INFORMATION
  Report Type: Spontaneous
  Country: US (occurrence: US)
  Receive Date: 20150102
  Receipt Date: 20150406
  Transmission Date: 20150821
  Serious: Yes (Hospitalization, Other)
  Sender: FDA-Public Use
  Company Number: US-UNITED THERAPEUTICS-UNT-2014-012865

PATIENT
  Age: 69 Year
  Sex: Female
  Weight: 204.8 kg

DRUGS (8)
  1. REVATIO [Concomitant]
     Active Substance: SILDENAFIL CITRATE
     Indication: PRODUCT USED FOR UNKNOWN INDICATION
  2. ORENITRAM [Suspect]
     Active Substance: TREPROSTINIL
     Dosage: 0.125 MG, BID
     Route: 048
     Dates: start: 20141231
  3. ASPIRIN                            /00002701/ [Concomitant]
     Active Substance: ASPIRIN
     Indication: PRODUCT USED FOR UNKNOWN INDICATION
     Dosage: 81 MG, UNK
  4. ORENITRAM [Suspect]
     Active Substance: TREPROSTINIL
     Dosage: 0.125 MG, BID
     Route: 048
  5. ORENITRAM [Suspect]
     Active Substance: TREPROSTINIL
     Indication: PULMONARY ARTERIAL HYPERTENSION
     Dosage: 0.125 MG, TID
     Route: 048
     Dates: start: 20141217
  6. ORENITRAM [Suspect]
     Active Substance: TREPROSTINIL
     Dosage: 0.25 MG, BID
     Route: 048
     Dates: start: 20141219, end: 201503
  7. ORENITRAM [Suspect]
     Active Substance: TREPROSTINIL
     Dosage: 0.125 MG, TID
     Route: 048
  8. ORENITRAM [Suspect]
     Active Substance: TREPROSTINIL
     Dosage: 0.125 MG, Q12H
     Route: 048
     Dates: start: 20141219

REACTIONS (19)
  - Abdominal pain upper [Unknown]
  - Drug intolerance [Unknown]
  - Therapy cessation [Unknown]
  - Blood gases abnormal [Unknown]
  - Vomiting [Unknown]
  - Drug dose omission [Unknown]
  - Nausea [Unknown]
  - Haemoptysis [Unknown]
  - Dyspnoea [Unknown]
  - Headache [Recovered/Resolved]
  - Throat irritation [Unknown]
  - Inappropriate schedule of drug administration [Unknown]
  - Pain in jaw [Unknown]
  - Diarrhoea [Unknown]
  - Epistaxis [Recovered/Resolved]
  - Dizziness [Unknown]
  - Malaise [Unknown]
  - Hypotension [Unknown]
  - Abdominal discomfort [Unknown]

NARRATIVE: CASE EVENT DATE: 201412
